FAERS Safety Report 7893169-8 (Version None)
Quarter: 2011Q4

REPORT INFORMATION
  Report Type: 
  Country: None (occurrence: None)
  Receive Date: 20111104
  Receipt Date: 20111021
  Transmission Date: 20120403
  Serious: Yes (Other)
  Sender: FDA-Public Use
  Company Number: PHHY2011BR93873

PATIENT
  Age: 34 Year
  Sex: Female
  Weight: 63 kg

DRUGS (5)
  1. ARCOXIA [Concomitant]
     Indication: PAIN
     Dosage: 90 MG, UNK
     Dates: start: 20090601
  2. SANDOSTATIN LAR [Suspect]
     Dosage: 10 MG, QMO
     Route: 030
     Dates: start: 20110501
  3. SANDOSTATIN LAR [Suspect]
     Dosage: 20 MG (HALF AMPOULE OF 20 MG)
     Route: 030
     Dates: start: 20111019
  4. SANDOSTATIN LAR [Suspect]
     Indication: PANCREATIC NEUROENDOCRINE TUMOUR
     Dosage: 10 MG, QMO
     Route: 030
     Dates: start: 20090701
  5. SANDOSTATIN LAR [Suspect]
     Dosage: 20 MG (HALF AMPOULE OF 20 MG)
     Route: 030
     Dates: start: 20110401

REACTIONS (4)
  - NAUSEA [None]
  - ABDOMINAL PAIN UPPER [None]
  - INJECTION SITE HAEMORRHAGE [None]
  - INJECTION SITE PAIN [None]
